FAERS Safety Report 19139674 (Version 2)
Quarter: 2021Q2

REPORT INFORMATION
  Report Type: Report from Study
  Country: CA (occurrence: CA)
  Receive Date: 20210415
  Receipt Date: 20210426
  Transmission Date: 20210717
  Serious: Yes (Death, Life-Threatening, Hospitalization, Other)
  Sender: FDA-Public Use
  Company Number: CA-ROCHE-2809649

PATIENT
  Age: 69 Year
  Sex: Male

DRUGS (23)
  1. DEXTROSE;SALINE [Concomitant]
     Dates: start: 20210402
  2. LASIX [Concomitant]
     Active Substance: FUROSEMIDE
     Dates: start: 20210402, end: 20210404
  3. OLANZAPINE. [Concomitant]
     Active Substance: OLANZAPINE
     Dates: start: 20210402
  4. MESNA. [Concomitant]
     Active Substance: MESNA
     Dates: start: 20210402, end: 20210404
  5. PREDNISONE. [Concomitant]
     Active Substance: PREDNISONE
     Dates: start: 20210303, end: 20210309
  6. APREPITANT. [Concomitant]
     Active Substance: APREPITANT
     Dates: start: 20210402, end: 20210404
  7. LOMOTIL (CANADA) [Concomitant]
     Dates: start: 202007
  8. ONDANSETRON [Concomitant]
     Active Substance: ONDANSETRON
     Dates: start: 20210402
  9. ALLOPURINOL. [Concomitant]
     Active Substance: ALLOPURINOL
     Dates: start: 20210331
  10. BENADRYL [Concomitant]
     Active Substance: DIPHENHYDRAMINE HYDROCHLORIDE
     Dates: start: 20210401, end: 20210407
  11. NORMAL SALINE [Concomitant]
     Active Substance: SODIUM CHLORIDE
     Dates: start: 20210402
  12. ROSUVASTATIN. [Concomitant]
     Active Substance: ROSUVASTATIN
     Dates: start: 2010
  13. TYLENOL [Concomitant]
     Active Substance: ACETAMINOPHEN
     Dates: start: 202103
  14. DEXAMETHASONE. [Concomitant]
     Active Substance: DEXAMETHASONE
     Dates: start: 20210317, end: 20210321
  15. PREDNISONE. [Concomitant]
     Active Substance: PREDNISONE
     Dates: start: 20210324, end: 20210330
  16. RITUXIMAB. [Suspect]
     Active Substance: RITUXIMAB
     Indication: HAEMATOLOGICAL MALIGNANCY
     Dosage: 375 MG/M2 IV 1.5?6HRS DAY 1 AND DAY 5 PRIOR TO CISPLATIN?DAY 1 AND DAY 5
     Route: 042
     Dates: start: 20210401, end: 20210405
  17. K?DUR [Concomitant]
     Active Substance: POTASSIUM CHLORIDE
     Dates: start: 20210405
  18. PANTOPRAZOLE [Concomitant]
     Active Substance: PANTOPRAZOLE
     Dates: start: 20210324
  19. TYLENOL [Concomitant]
     Active Substance: ACETAMINOPHEN
     Dates: start: 202007
  20. CYCLOPHOSPHAMIDE. [Suspect]
     Active Substance: CYCLOPHOSPHAMIDE
     Indication: HAEMATOLOGICAL MALIGNANCY
     Dosage: 1.75 G/M2 IV 2 HOURS, DAY 2, DAY 3 AND DAY 4
     Route: 042
     Dates: start: 20210402, end: 20210404
  21. ETOPOSIDE. [Suspect]
     Active Substance: ETOPOSIDE
     Indication: HAEMATOLOGICAL MALIGNANCY
     Dosage: 350 MG/M2 IV 2 HOURS, DAY 2, DAY 3 AND DAY 4
     Route: 042
     Dates: start: 20210402, end: 20210404
  22. CISPLATIN. [Suspect]
     Active Substance: CISPLATIN
     Indication: HAEMATOLOGICAL MALIGNANCY
     Dosage: 35 MG/M2 IV, 2 HOURS, DAY 2, DAY 3 AND DAY 4
     Route: 042
     Dates: start: 20210402, end: 20210404
  23. SEPTRA [Concomitant]
     Active Substance: SULFAMETHOXAZOLE\TRIMETHOPRIM
     Dates: start: 2021

REACTIONS (9)
  - Bacteraemia [Fatal]
  - Hypokalaemia [Unknown]
  - Acute kidney injury [Not Recovered/Not Resolved]
  - Hypotension [Not Recovered/Not Resolved]
  - Atrial flutter [Not Recovered/Not Resolved]
  - Hypoxia [Not Recovered/Not Resolved]
  - Apnoea [Recovered/Resolved with Sequelae]
  - Sinus tachycardia [Recovered/Resolved]
  - Depressed level of consciousness [Recovered/Resolved with Sequelae]

NARRATIVE: CASE EVENT DATE: 20210406
